FAERS Safety Report 15329723 (Version 1)
Quarter: 2018Q3

REPORT INFORMATION
  Report Type: Spontaneous
  Country: US (occurrence: US)
  Receive Date: 20180823
  Receipt Date: 20180823
  Transmission Date: 20181010
  Serious: Yes (Disabling, Other)
  Sender: FDA-Public Use
  Company Number: None

PATIENT
  Age: 37 Year
  Sex: Female
  Weight: 71.55 kg

DRUGS (3)
  1. THYROID MEDS [Concomitant]
  2. PROGESTERONE. [Concomitant]
     Active Substance: PROGESTERONE
  3. SYNTHROID [Suspect]
     Active Substance: LEVOTHYROXINE SODIUM
     Indication: HYPOTHYROIDISM
     Dosage: ?          QUANTITY:30 TABLET(S);?
     Route: 048
     Dates: start: 20180819, end: 20180823

REACTIONS (5)
  - Feeling abnormal [None]
  - Intellectual disability [None]
  - Product physical issue [None]
  - Drug ineffective [None]
  - Hypothyroidism [None]

NARRATIVE: CASE EVENT DATE: 20180819
